FAERS Safety Report 16635961 (Version 3)
Quarter: 2020Q3

REPORT INFORMATION
  Report Type: Spontaneous
  Country: MM (occurrence: MM)
  Receive Date: 20190726
  Receipt Date: 20200922
  Transmission Date: 20201102
  Serious: Yes (Hospitalization, Other)
  Sender: FDA-Public Use
  Company Number: MM-JNJFOC-20190726495

PATIENT
  Age: 48 Year
  Sex: Female
  Weight: 31 kg

DRUGS (32)
  1. INSULIN MIXTARD [Concomitant]
     Active Substance: INSULIN HUMAN
     Indication: DIABETES MELLITUS
     Dosage: MORNING 12/ EVENING 8
     Route: 058
     Dates: start: 20190322
  2. METFORMIN [Concomitant]
     Active Substance: METFORMIN HYDROCHLORIDE
     Indication: DIABETES MELLITUS
     Route: 048
     Dates: start: 20180622
  3. FRUSEMIDE                          /00032601/ [Concomitant]
     Active Substance: FUROSEMIDE
     Route: 048
     Dates: start: 20200226
  4. ARIPEN [Concomitant]
     Indication: MENTAL DISORDER
     Dosage: HS
     Route: 048
     Dates: start: 20191017
  5. RECORMON                           /00928303/ [Concomitant]
     Indication: CHRONIC KIDNEY DISEASE
     Route: 058
     Dates: start: 20200303
  6. PYRAZINAMIDE. [Suspect]
     Active Substance: PYRAZINAMIDE
     Indication: TUBERCULOSIS
     Route: 048
     Dates: start: 20180813, end: 20200221
  7. PAS [Suspect]
     Active Substance: AMINOSALICYLIC ACID
     Indication: TUBERCULOSIS
     Dates: start: 20180813, end: 20181017
  8. MIXTARD                            /00806401/ [Concomitant]
     Active Substance: INSULIN HUMAN
     Indication: DIABETES MELLITUS
     Dosage: 18U (BEFORE BREAKFAST,BEFORE LUNCH,BEFORE DINNER
     Route: 058
     Dates: start: 20200218, end: 20200330
  9. DELAMANID [Suspect]
     Active Substance: DELAMANID
     Indication: TUBERCULOSIS
     Route: 048
     Dates: start: 20180813, end: 20200630
  10. GLUCOSE [Concomitant]
     Active Substance: DEXTROSE
     Indication: HYPOGLYCAEMIA
     Dosage: 50%, 2 AMPULES STAT.
     Route: 042
     Dates: start: 20190617, end: 20190617
  11. RANITIDINE. [Concomitant]
     Active Substance: RANITIDINE
     Indication: GASTRITIS
     Route: 065
     Dates: start: 20190710
  12. AMLODIPINE [Concomitant]
     Active Substance: AMLODIPINE BESYLATE
     Route: 048
     Dates: start: 20180622
  13. GABAPENTIN. [Concomitant]
     Active Substance: GABAPENTIN
     Indication: PALLIATIVE CARE
     Route: 048
     Dates: start: 20200219
  14. IMIPENEM [Suspect]
     Active Substance: IMIPENEM
     Indication: TUBERCULOSIS
     Dosage: TWICE A DAY 6 WEEKS
     Route: 042
     Dates: start: 20180813, end: 20190822
  15. CO?AMOXICLAV                       /02043401/ [Suspect]
     Active Substance: AMOXICILLIN\CLAVULANIC ACID
     Indication: TUBERCULOSIS
     Dosage: TWICE A DAY  6 WEEKS
     Route: 048
     Dates: start: 20180813, end: 20190822
  16. AMLODIPINE [Concomitant]
     Active Substance: AMLODIPINE BESYLATE
     Indication: HYPERTENSION
     Route: 065
  17. FERROVIT                           /01612801/ [Concomitant]
     Indication: ANAEMIA
     Route: 048
     Dates: start: 20180709, end: 20200525
  18. FRUSEMIDE                          /00032601/ [Concomitant]
     Active Substance: FUROSEMIDE
     Indication: CHRONIC KIDNEY DISEASE
     Route: 042
     Dates: start: 20200218, end: 20200226
  19. CITALOPRAM [Concomitant]
     Active Substance: CITALOPRAM HYDROBROMIDE
     Indication: MENTAL DISORDER
     Route: 048
     Dates: start: 20191017
  20. TOTHEMA [Concomitant]
     Active Substance: COPPER GLUCONATE\FERROUS GLUCONATE\MANGANESE GLUCONATE
     Indication: CHRONIC KIDNEY DISEASE
     Dosage: 2 AMPOULES
     Route: 048
     Dates: start: 20200525
  21. CLOFAZIMINE [Suspect]
     Active Substance: CLOFAZIMINE
     Indication: TUBERCULOSIS
     Route: 048
     Dates: start: 20180813, end: 20200630
  22. MANNYL [Concomitant]
     Indication: INTRACRANIAL PRESSURE INCREASED
     Dosage: 1 BOTTLE
     Route: 042
     Dates: start: 20190618, end: 20190618
  23. LIVOLIN FORTE [Concomitant]
     Indication: PALLIATIVE CARE
     Route: 048
     Dates: start: 20200218
  24. SALBUTAMOL [Concomitant]
     Active Substance: ALBUTEROL
     Indication: PALLIATIVE CARE
     Dosage: NEBULISER
     Dates: start: 20200218, end: 20200320
  25. HYDROCORTISONE. [Concomitant]
     Active Substance: HYDROCORTISONE
     Indication: PALLIATIVE CARE
     Route: 042
     Dates: start: 20200218, end: 20200229
  26. NITROL                             /00003201/ [Concomitant]
     Indication: CARDIAC FAILURE CONGESTIVE
     Route: 060
     Dates: start: 20200219, end: 20200221
  27. GLICLAZIDE [Concomitant]
     Active Substance: GLICLAZIDE
     Indication: PRODUCT USED FOR UNKNOWN INDICATION
     Route: 065
     Dates: start: 20190213
  28. ASPRIN [Concomitant]
     Active Substance: ASPIRIN
     Indication: CARDIAC FAILURE CONGESTIVE
     Dosage: STAT
     Route: 048
     Dates: start: 20200218
  29. BEDAQUILINE [Suspect]
     Active Substance: BEDAQUILINE
     Indication: TUBERCULOSIS
     Route: 048
     Dates: start: 20180813, end: 20200630
  30. METFORMIN [Concomitant]
     Active Substance: METFORMIN HYDROCHLORIDE
     Route: 048
     Dates: start: 20180825
  31. CLOPILET                           /01220701/ [Concomitant]
     Indication: CARDIAC FAILURE CONGESTIVE
     Dosage: STAT
     Route: 048
     Dates: start: 20200218
  32. MIRTAZAPINE. [Concomitant]
     Active Substance: MIRTAZAPINE
     Indication: MENTAL DISORDER
     Dosage: HS
     Route: 048
     Dates: start: 20191017

REACTIONS (7)
  - Off label use [Unknown]
  - Muscle contractions involuntary [Unknown]
  - Partial seizures [Unknown]
  - Vomiting [Recovered/Resolved]
  - Intentional product use issue [Unknown]
  - Hyponatraemia [Not Recovered/Not Resolved]
  - Syncope [Unknown]

NARRATIVE: CASE EVENT DATE: 20190617
